FAERS Safety Report 10297860 (Version 8)
Quarter: 2020Q2

REPORT INFORMATION
  Report Type: Report from Study
  Country: US (occurrence: US)
  Receive Date: 20140711
  Receipt Date: 20200618
  Transmission Date: 20200713
  Serious: Yes (Hospitalization, Disabling, Other)
  Sender: FDA-Public Use
  Company Number: US-SANOFI-AVENTIS-2013SA040394

PATIENT
  Sex: Female
  Weight: 66.6 kg

DRUGS (16)
  1. TERIFLUNOMIDE. [Suspect]
     Active Substance: TERIFLUNOMIDE
     Indication: MULTIPLE SCLEROSIS
     Dosage: 14 MG,QD
     Route: 048
     Dates: start: 201203
  2. GABAPENTIN. [Concomitant]
     Active Substance: GABAPENTIN
     Dosage: UNK
  3. ALVESCO [Concomitant]
     Active Substance: CICLESONIDE
     Indication: ASTHMA
     Dosage: DOSAGE: 1 PUFF, TWO TIMES PER DAY.
  4. TOCOPHEROL [Concomitant]
     Active Substance: TOCOPHEROL
     Dosage: UNK
  5. FISH OIL [Concomitant]
     Active Substance: FISH OIL
     Dosage: UNK
  6. OMEPRAZOLE. [Concomitant]
     Active Substance: OMEPRAZOLE
     Indication: ASTHMA
     Dosage: STRENGTH: 20 MG
  7. ACTIVELLA [Concomitant]
     Active Substance: ESTRADIOL\NORETHINDRONE ACETATE
     Indication: HORMONE REPLACEMENT THERAPY
     Dosage: 1 DF,UNK
  8. SYMBICORT [Concomitant]
     Active Substance: BUDESONIDE\FORMOTEROL FUMARATE DIHYDRATE
     Indication: ASTHMA
  9. TERIFLUNOMIDE. [Suspect]
     Active Substance: TERIFLUNOMIDE
     Dosage: 14 MG,QD
     Route: 048
     Dates: start: 20151009
  10. TERIFLUNOMIDE. [Suspect]
     Active Substance: TERIFLUNOMIDE
     Dosage: 14 MG,QD
     Route: 048
     Dates: start: 20130402, end: 20140728
  11. RED YEAST RICE [Concomitant]
     Active Substance: DIETARY SUPPLEMENT
     Dosage: UNK
  12. UBIDECARENONE [Concomitant]
     Active Substance: UBIDECARENONE
     Dosage: UNK
  13. CARVEDILOL. [Concomitant]
     Active Substance: CARVEDILOL
     Dosage: UNK
  14. ASCORBIC ACID. [Concomitant]
     Active Substance: ASCORBIC ACID
     Dosage: UNK
  15. VITAMIN D3 [Concomitant]
     Active Substance: CHOLECALCIFEROL
     Dosage: UNK
  16. SALBUTAMOL [Concomitant]
     Active Substance: ALBUTEROL
     Indication: ASTHMA
     Dosage: UNK UNK,PRN

REACTIONS (19)
  - Dry skin [Unknown]
  - Pruritus [Unknown]
  - Fatigue [Not Recovered/Not Resolved]
  - Rash [Recovering/Resolving]
  - Sleep disorder [Unknown]
  - Pain [Recovering/Resolving]
  - Staphylococcal infection [Recovered/Resolved]
  - Back pain [Unknown]
  - Influenza [Not Recovered/Not Resolved]
  - Hypertension [Unknown]
  - Intervertebral disc protrusion [Recovered/Resolved]
  - Lumbar vertebral fracture [Not Recovered/Not Resolved]
  - Nausea [Recovering/Resolving]
  - Frequent bowel movements [Recovering/Resolving]
  - Burning sensation [Recovering/Resolving]
  - Malaise [Not Recovered/Not Resolved]
  - Disability [Unknown]
  - Depression [Unknown]
  - Erythema [Unknown]

NARRATIVE: CASE EVENT DATE: 2014
